FAERS Safety Report 13461463 (Version 1)
Quarter: 2017Q2

REPORT INFORMATION
  Report Type: Spontaneous
  Country: JP (occurrence: JP)
  Receive Date: 20170420
  Receipt Date: 20170420
  Transmission Date: 20170830
  Serious: Yes (Other)
  Sender: FDA-Public Use
  Company Number: JP-009507513-1704JPN001038J

PATIENT
  Sex: Female

DRUGS (4)
  1. LOXONIN [Concomitant]
     Active Substance: LOXOPROFEN SODIUM
     Indication: MUSCULOSKELETAL STIFFNESS
     Dosage: 100 MG, PRN
     Route: 062
     Dates: start: 20160602
  2. SOVALDI [Suspect]
     Active Substance: SOFOSBUVIR
     Dosage: UNK
     Route: 048
     Dates: start: 20160608, end: 20160830
  3. PREMINENT TABLETS HD [Concomitant]
     Indication: HYPERTENSION
     Dosage: 1 DF, QD
     Route: 048
     Dates: start: 20160520, end: 20160630
  4. REBETOL [Suspect]
     Active Substance: RIBAVIRIN
     Dosage: UNK UNK, QD
     Route: 048
     Dates: start: 20160608, end: 20160830

REACTIONS (2)
  - Anaemia [Recovered/Resolved]
  - Hyperbilirubinaemia [Recovered/Resolved]

NARRATIVE: CASE EVENT DATE: 20160615
